FAERS Safety Report 7969944-8 (Version None)
Quarter: 2011Q4

REPORT INFORMATION
  Report Type: 
  Country: None (occurrence: None)
  Receive Date: 20111122
  Receipt Date: 20110822
  Transmission Date: 20120403
  Serious: No
  Sender: FDA-Public Use
  Company Number: PHEH2011US02247

PATIENT
  Age: 53 Year
  Sex: Female
  Weight: 156 kg

DRUGS (5)
  1. TIZANIDINE HCL [Concomitant]
  2. CYMBALTA [Concomitant]
  3. BETASERON [Concomitant]
  4. LYRICA [Concomitant]
  5. GILENYA [Suspect]
     Indication: MULTIPLE SCLEROSIS
     Dosage: 0.5 MG, DAILY, ORAL
     Route: 048
     Dates: start: 20110425

REACTIONS (2)
  - NEURALGIA [None]
  - PARAESTHESIA [None]
